FAERS Safety Report 9925426 (Version 1)
Quarter: 2014Q1

REPORT INFORMATION
  Report Type: Spontaneous
  Country: US (occurrence: None)
  Receive Date: 20140225
  Receipt Date: 20140225
  Transmission Date: 20141002
  Serious: No
  Sender: FDA-Public Use
  Company Number: None

PATIENT
  Age: 54 Year
  Sex: Female

DRUGS (3)
  1. VELCADE [Suspect]
     Indication: PLASMA CELL MYELOMA
     Dates: start: 201004
  2. REVLIMID [Suspect]
     Indication: PLASMA CELL MYELOMA
     Dates: start: 201004, end: 201305
  3. DEXAMETHASONE [Concomitant]

REACTIONS (3)
  - Diarrhoea [None]
  - Fatigue [None]
  - Constipation [None]
